FAERS Safety Report 17347720 (Version 1)
Quarter: 2020Q1

REPORT INFORMATION
  Report Type: Spontaneous
  Country: US (occurrence: US)
  Receive Date: 20200129
  Receipt Date: 20200129
  Transmission Date: 20200409
  Serious: Yes (Life-Threatening, Hospitalization, Other)
  Sender: FDA-Public Use
  Company Number: None

PATIENT
  Age: 24 Year
  Sex: Female
  Weight: 40.5 kg

DRUGS (10)
  1. DEPAKOTE [Concomitant]
     Active Substance: DIVALPROEX SODIUM
  2. KLONOPIN [Concomitant]
     Active Substance: CLONAZEPAM
  3. IBUPROFEN. [Concomitant]
     Active Substance: IBUPROFEN
  4. BENZOCAINE LIQUID ANESTHETIC ORAL PAIN RELIEF-20% [Suspect]
     Active Substance: BENZOCAINE
     Indication: TOOTHACHE
     Dosage: ?          QUANTITY:1 DROP(S);?
     Route: 061
  5. BANZEL [Concomitant]
     Active Substance: RUFINAMIDE
  6. TOPAMAX [Concomitant]
     Active Substance: TOPIRAMATE
  7. VEGUS NERVESTIMULATOR IMPLANT [Concomitant]
  8. DEVICE FOR SEIZURE CONTROL [Concomitant]
  9. KEPPRA [Concomitant]
     Active Substance: LEVETIRACETAM
  10. CLOBAZAM. [Concomitant]
     Active Substance: CLOBAZAM

REACTIONS (12)
  - Dysstasia [None]
  - Seizure [None]
  - Fall [None]
  - Methaemoglobinaemia [None]
  - Gait inability [None]
  - Lethargy [None]
  - Irregular breathing [None]
  - Oxygen saturation decreased [None]
  - Cyanosis [None]
  - Loss of consciousness [None]
  - Confusional state [None]
  - Heart rate irregular [None]

NARRATIVE: CASE EVENT DATE: 20200125
